FAERS Safety Report 8187628-0 (Version None)
Quarter: 2012Q1

REPORT INFORMATION
  Report Type: 
  Country: None (occurrence: None)
  Receive Date: 20120306
  Receipt Date: 20110712
  Transmission Date: 20120608
  Serious: Yes (Other)
  Sender: FDA-Public Use
  Company Number: US-JNJFOC-20110608126

PATIENT
  Sex: Male

DRUGS (1)
  1. NUCYNTA ER [Suspect]
     Indication: PRODUCT USED FOR UNKNOWN INDICATION
     Route: 048
     Dates: start: 20110501, end: 20110528

REACTIONS (2)
  - CHEST DISCOMFORT [None]
  - DYSPNOEA [None]
